FAERS Safety Report 6033156-8 (Version None)
Quarter: 2009Q1

REPORT INFORMATION
  Report Type: 
  Country: None (occurrence: None)
  Receive Date: 20090109
  Receipt Date: 20090106
  Transmission Date: 20090719
  Serious: Yes (Death)
  Sender: FDA-Public Use
  Company Number: GR-SANOFI-SYNTHELABO-A01200807991

PATIENT
  Age: 78 Year
  Sex: Female

DRUGS (4)
  1. DECADRON [Concomitant]
     Dates: start: 20080510, end: 20080510
  2. ZOFRON [Concomitant]
     Dates: start: 20080510, end: 20080510
  3. AVASTIN [Suspect]
     Indication: COLON CANCER
     Dosage: 280 MG
     Route: 041
     Dates: start: 20080510, end: 20080510
  4. ELOXATIN [Suspect]
     Indication: COLON CANCER
     Dosage: 125 MG
     Route: 041
     Dates: start: 20080510, end: 20080510

REACTIONS (6)
  - DYSPNOEA [None]
  - HYPERSENSITIVITY [None]
  - NON-CARDIOGENIC PULMONARY OEDEMA [None]
  - PYREXIA [None]
  - RESPIRATORY FAILURE [None]
  - SEPTIC SHOCK [None]
